FAERS Safety Report 14969515 (Version 1)
Quarter: 2018Q3

REPORT INFORMATION
  Report Type: Spontaneous
  Country: US (occurrence: US)
  Receive Date: 20180604
  Receipt Date: 20180604
  Transmission Date: 20181010
  Serious: No
  Sender: FDA-Public Use
  Company Number: US-HERITAGE PHARMACEUTICALS-2018HTG00084

PATIENT
  Sex: Female
  Weight: 68.27 kg

DRUGS (9)
  1. BUPROPION (MYLAN) [Suspect]
     Active Substance: BUPROPION
     Dosage: 200 MG, 1X/DAY IN THE MORNING
     Route: 048
     Dates: end: 201801
  2. VITAMIN B COMPLEX [Concomitant]
     Active Substance: CYANOCOBALAMIN\DEXPANTHENOL\NIACINAMIDE\PYRIDOXINE HYDROCHLORIDE\RIBOFLAVIN 5^-PHOSPHATE SODIUM\THIAMINE HYDROCHLORIDE\VITAMIN B COMPLEX
  3. BIOTIN [Concomitant]
     Active Substance: BIOTIN
  4. BUPROPION (MYLAN) [Suspect]
     Active Substance: BUPROPION
     Indication: DEPRESSION
     Dosage: 200 MG, 1X/DAY IN THE MORNING
     Route: 048
     Dates: start: 2015
  5. BUPROPION HYDROCHLORIDE. [Suspect]
     Active Substance: BUPROPION HYDROCHLORIDE
     Dosage: 200 MG, 1X/DAY IN THE MORNING
     Route: 048
     Dates: start: 201801
  6. VITAMIN D [Concomitant]
     Active Substance: CHOLECALCIFEROL
  7. MULTIVITAMIN [Concomitant]
     Active Substance: VITAMINS
  8. CALCIUM [Concomitant]
     Active Substance: CALCIUM
  9. BUPROPION HYDROCHLORIDE. [Suspect]
     Active Substance: BUPROPION HYDROCHLORIDE
     Indication: DEPRESSION
     Dosage: 200 MG, 1X/DAY IN THE MORNING
     Route: 048
     Dates: start: 2015

REACTIONS (2)
  - Urinary incontinence [Not Recovered/Not Resolved]
  - Nocturia [Not Recovered/Not Resolved]

NARRATIVE: CASE EVENT DATE: 2015
